FAERS Safety Report 14081417 (Version 2)
Quarter: 2017Q4

REPORT INFORMATION
  Report Type: Spontaneous
  Country: AT (occurrence: AT)
  Receive Date: 20171012
  Receipt Date: 20171127
  Transmission Date: 20180321
  Serious: Yes (Hospitalization, Other)
  Sender: FDA-Public Use
  Company Number: AT-ASTELLAS-2017US040955

PATIENT
  Age: 51 Year
  Sex: Male

DRUGS (2)
  1. EVEROLIMUS. [Concomitant]
     Active Substance: EVEROLIMUS
     Indication: LIVER TRANSPLANT
     Dosage: UNK UNK, UNKNOWN FREQ.
     Route: 065
  2. PROGRAF [Suspect]
     Active Substance: TACROLIMUS\TACROLIMUS ANHYDROUS
     Indication: LIVER TRANSPLANT
     Dosage: 2 MG, TWICE DAILY (STARTED 2 DAYS AFTER TRANSPLANT)
     Route: 065

REACTIONS (2)
  - Incisional hernia repair [Unknown]
  - Incisional hernia [Recovered/Resolved]

NARRATIVE: CASE EVENT DATE: 201310
